FAERS Safety Report 6771614-9 (Version None)
Quarter: 2010Q2

REPORT INFORMATION
  Report Type: 
  Country: None (occurrence: None)
  Receive Date: 20100616
  Receipt Date: 20100604
  Transmission Date: 20101027
  Serious: Yes (Other)
  Sender: FDA-Public Use
  Company Number: PHHY2010FR36848

PATIENT
  Age: 60 Year
  Sex: Female

DRUGS (1)
  1. FEMARA [Suspect]
     Indication: BREAST CANCER
     Dosage: ONE TABLET EVERY OTHER DAY
     Route: 048

REACTIONS (3)
  - INSOMNIA [None]
  - MYALGIA [None]
  - URGE INCONTINENCE [None]
